FAERS Safety Report 9168338 (Version 2)
Quarter: 2013Q2

REPORT INFORMATION
  Report Type: Spontaneous
  Country: US (occurrence: US)
  Receive Date: 20130318
  Receipt Date: 20130404
  Transmission Date: 20140414
  Serious: Yes (Other)
  Sender: FDA-Public Use
  Company Number: US-PFIZER INC-2013087363

PATIENT
  Age: 76 Year
  Sex: Female
  Weight: 74.83 kg

DRUGS (4)
  1. ARTHROTEC [Suspect]
     Indication: ARTHRITIS
     Dosage: 200/75 MG, 2X/DAY
     Route: 048
  2. SIMVASTATIN [Suspect]
     Indication: NEUROPATHY PERIPHERAL
     Dosage: UNK
  3. SIMVASTATIN [Suspect]
     Indication: HYPOAESTHESIA
  4. HYDROCHLOROTHIAZIDE [Concomitant]
     Indication: BLOOD PRESSURE ABNORMAL
     Dosage: UNK

REACTIONS (2)
  - Ankle fracture [Unknown]
  - Off label use [Unknown]
